FAERS Safety Report 20526160 (Version 3)
Quarter: 2022Q2

REPORT INFORMATION
  Report Type: Spontaneous
  Country: CN (occurrence: CN)
  Receive Date: 20220228
  Receipt Date: 20220404
  Transmission Date: 20220721
  Serious: Yes (Death, Life-Threatening, Hospitalization, Other)
  Sender: FDA-Public Use
  Company Number: CN-FOSUNKITE-FOSUNKITE-20210016

PATIENT
  Age: 57 Year
  Sex: Male

DRUGS (3)
  1. YESCARTA [Suspect]
     Active Substance: AXICABTAGENE CILOLEUCEL
     Indication: Diffuse large B-cell lymphoma stage IV
     Dosage: 68 ML SINGLE
     Route: 041
     Dates: start: 20210925, end: 20210925
  2. CYCLOPHOSPHAMIDE [Concomitant]
     Active Substance: CYCLOPHOSPHAMIDE
     Indication: Lymphodepletion
     Dosage: 50 MG QD
     Route: 041
     Dates: start: 20210920, end: 20210921
  3. FLUDARABINE [Concomitant]
     Active Substance: FLUDARABINE PHOSPHATE
     Indication: Lymphodepletion
     Dosage: 0.5G QD
     Dates: start: 20210920, end: 20210921

REACTIONS (16)
  - Diffuse large B-cell lymphoma stage IV [Fatal]
  - Immune effector cell-associated neurotoxicity syndrome [Fatal]
  - Cytokine release syndrome [Recovered/Resolved]
  - Renal failure [Unknown]
  - Shock [Unknown]
  - Myelosuppression [Unknown]
  - Disseminated intravascular coagulation [Unknown]
  - Intra-abdominal fluid collection [Unknown]
  - Pneumonia [Unknown]
  - Dermatitis herpetiformis [Unknown]
  - Metabolic acidosis [Unknown]
  - Post herpetic neuralgia [Unknown]
  - Pleural effusion [Unknown]
  - Hypoproteinaemia [Unknown]
  - Electrolyte imbalance [Unknown]
  - Jaundice [Unknown]

NARRATIVE: CASE EVENT DATE: 20211001
